FAERS Safety Report 11058114 (Version 1)
Quarter: 2015Q2

REPORT INFORMATION
  Report Type: Spontaneous
  Country: US (occurrence: None)
  Receive Date: 20150422
  Receipt Date: 20150422
  Transmission Date: 20150821
  Serious: Yes (Disabling, Other)
  Sender: FDA-Public Use
  Company Number: None

PATIENT
  Age: 54 Year
  Sex: Female
  Weight: 113.4 kg

DRUGS (4)
  1. MULTI VITAMINS [Concomitant]
  2. CIPRO [Suspect]
     Active Substance: CIPROFLOXACIN HYDROCHLORIDE
     Indication: BACTERIAL INFECTION
     Dosage: 1 PILL 2X DAY TAKEN BY MOUTH
     Route: 048
     Dates: start: 20150227, end: 20150307
  3. CIPRO [Suspect]
     Active Substance: CIPROFLOXACIN HYDROCHLORIDE
     Indication: POST PROCEDURAL INFECTION
     Dosage: 1 PILL 2X DAY TAKEN BY MOUTH
     Route: 048
     Dates: start: 20150227, end: 20150307
  4. LISINOPRIL. [Concomitant]
     Active Substance: LISINOPRIL

REACTIONS (3)
  - Tendon disorder [None]
  - Ligament disorder [None]
  - Nervous system disorder [None]

NARRATIVE: CASE EVENT DATE: 20150227
